FAERS Safety Report 8096241-5 (Version None)
Quarter: 2012Q1

REPORT INFORMATION
  Report Type: 
  Country: None (occurrence: None)
  Receive Date: 20120129
  Receipt Date: 20111220
  Transmission Date: 20120608
  Serious: No
  Sender: FDA-Public Use
  Company Number: US-ABBOTT-11P-163-0885715-00

PATIENT
  Sex: Male
  Weight: 89.892 kg

DRUGS (8)
  1. HUMIRA [Suspect]
     Indication: CROHN'S DISEASE
     Dates: start: 20110901
  2. ENTOCORT EC [Concomitant]
     Indication: CROHN'S DISEASE
  3. TRIAMTERENE [Concomitant]
     Indication: HYPERTENSION
  4. BISOPROLOL [Concomitant]
     Indication: HYPERTENSION
  5. SONATA [Concomitant]
     Indication: INSOMNIA
  6. VITAMIN B-12 [Concomitant]
     Indication: VITAMIN SUPPLEMENTATION
  7. FENOFIBRATE [Concomitant]
     Indication: BLOOD CHOLESTEROL INCREASED
  8. TRAMADOL HCL [Concomitant]
     Indication: PAIN

REACTIONS (1)
  - ONYCHOMYCOSIS [None]
